FAERS Safety Report 4335252-X (Version None)
Quarter: 2004Q2

REPORT INFORMATION
  Report Type: 
  Country: None (occurrence: None)
  Receive Date: 20040406
  Receipt Date: 20040211
  Transmission Date: 20050107
  Serious: Yes (Other)
  Sender: FDA-Public Use
  Company Number: 358864

PATIENT
  Age: 34 Year
  Sex: Male
  Weight: 63.5 kg

DRUGS (8)
  1. FUZEON [Suspect]
     Indication: HIV INFECTION
     Dosage: 90 MG 2 PER DAY SUBCUTANEOUS
     Route: 058
     Dates: start: 20030415
  2. DIFLUCAN [Concomitant]
  3. BACTRIM [Concomitant]
  4. KALETRA [Concomitant]
  5. VIREAD [Concomitant]
  6. VIDEX [Concomitant]
  7. LIVERITE (AMINO ACIDS NOS/CHOLINE BITARTRATE/CYANOCOBALAMIN/CYSTEINE H [Concomitant]
  8. MILK THISTLE (SILYMARIN) [Concomitant]

REACTIONS (4)
  - ABDOMINAL DISTENSION [None]
  - INJECTION SITE DISCOMFORT [None]
  - INJECTION SITE PAIN [None]
  - WEIGHT INCREASED [None]
